FAERS Safety Report 10355554 (Version 2)
Quarter: 2014Q4

REPORT INFORMATION
  Report Type: Report from Study
  Country: GB (occurrence: GB)
  Receive Date: 20140731
  Receipt Date: 20141022
  Transmission Date: 20150528
  Serious: Yes (Other)
  Sender: FDA-Public Use
  Company Number: GB-OTSUKA-US-2014-11867

PATIENT

DRUGS (3)
  1. OPC-41061 [Suspect]
     Active Substance: TOLVAPTAN
     Indication: CONGENITAL CYSTIC KIDNEY DISEASE
     Dosage: 120 MG MILLIGRAM(S), UNK
     Route: 048
     Dates: start: 20111124, end: 20140716
  2. PERINDOPRIL [Concomitant]
     Active Substance: PERINDOPRIL
     Indication: HYPERTENSION
     Dosage: 8 MG MILLIGRAM(S), DAILY DOSE
     Route: 048
     Dates: start: 20070102
  3. IRBESARTAN. [Concomitant]
     Active Substance: IRBESARTAN
     Indication: HYPERTENSION
     Dosage: 150 MG MILLIGRAM(S), DAILY DOSE
     Route: 048
     Dates: start: 20080623

REACTIONS (2)
  - Ataxia [Recovered/Resolved]
  - Dysgraphia [None]

NARRATIVE: CASE EVENT DATE: 20140724
